FAERS Safety Report 8949442 (Version 2)
Quarter: 2012Q4

REPORT INFORMATION
  Report Type: 
  Country: US (occurrence: US)
  Receive Date: 20121206
  Receipt Date: 20121227
  Transmission Date: 20130627
  Serious: Yes (Other)
  Sender: FDA-Public Use
  Company Number: US-PFIZER INC-2012302019

PATIENT
  Age: 78 Year
  Sex: Male
  Weight: 79.37 kg

DRUGS (4)
  1. TOVIAZ [Suspect]
     Indication: FREQUENCY URINARY
     Dosage: 4 mg, UNK
     Route: 048
     Dates: start: 201211, end: 20121130
  2. TOVIAZ [Suspect]
     Indication: NOCTURNAL FREQUENCY
  3. INSULIN ASPART [Concomitant]
     Indication: DIABETES
     Dosage: UNK, 3x/day
  4. LANTUS [Concomitant]
     Indication: DIABETES
     Dosage: UNK, 1x/day

REACTIONS (2)
  - Visual impairment [Unknown]
  - Diplopia [Recovered/Resolved]
